FAERS Safety Report 4375733-6 (Version None)
Quarter: 2004Q2

REPORT INFORMATION
  Report Type: 
  Country: None (occurrence: None)
  Receive Date: 20040608
  Receipt Date: 20030318
  Transmission Date: 20050107
  Serious: Yes (Other)
  Sender: FDA-Public Use
  Company Number: 200310923BCC

PATIENT
  Age: 38 Year
  Sex: Male
  Weight: 86.1834 kg

DRUGS (4)
  1. ALEVE [Suspect]
     Indication: BACK PAIN
     Dosage: 440 MG, ONCE, ORAL
     Route: 048
     Dates: start: 20030317
  2. INDERAL [Concomitant]
  3. NORVASC [Concomitant]
  4. LISINOPRIL [Concomitant]

REACTIONS (2)
  - DYSPNOEA [None]
  - URTICARIA [None]
